FAERS Safety Report 7682984-1 (Version None)
Quarter: 2011Q3

REPORT INFORMATION
  Report Type: 
  Country: None (occurrence: None)
  Receive Date: 20110815
  Receipt Date: 20110803
  Transmission Date: 20111222
  Serious: Yes (Hospitalization)
  Sender: FDA-Public Use
  Company Number: DE-ROCHE-796409

PATIENT
  Sex: Female
  Weight: 75 kg

DRUGS (2)
  1. ZOMETA [Suspect]
     Route: 042
     Dates: start: 20101221, end: 20110704
  2. CAPECITABINE [Suspect]
     Route: 048
     Dates: start: 20110703, end: 20110716

REACTIONS (1)
  - OSTEONECROSIS OF JAW [None]
